FAERS Safety Report 14258214 (Version 1)
Quarter: 2017Q4

REPORT INFORMATION
  Report Type: Spontaneous
  Country: US (occurrence: US)
  Receive Date: 20171206
  Receipt Date: 20171206
  Transmission Date: 20180321
  Serious: Yes (Other)
  Sender: FDA-Public Use
  Company Number: None

PATIENT
  Age: 36 Year
  Sex: Female
  Weight: 70.2 kg

DRUGS (2)
  1. MITCHUM SMART SOLID [Suspect]
     Active Substance: ALUMINUM ZIRCONIUM TETRACHLOROHYDREX GLY
     Indication: SKIN ODOUR ABNORMAL
     Route: 061
     Dates: start: 20171115, end: 20171204
  2. MITCHUM SMART SOLID [Suspect]
     Active Substance: ALUMINUM ZIRCONIUM TETRACHLOROHYDREX GLY
     Indication: PROPHYLAXIS
     Route: 061
     Dates: start: 20171115, end: 20171204

REACTIONS (2)
  - Application site burn [None]
  - Urticaria [None]

NARRATIVE: CASE EVENT DATE: 20171204
